FAERS Safety Report 15619898 (Version 1)
Quarter: 2018Q4

REPORT INFORMATION
  Report Type: Report from Study
  Country: US (occurrence: US)
  Receive Date: 20181115
  Receipt Date: 20181115
  Transmission Date: 20190205
  Serious: Yes (Other)
  Sender: FDA-Public Use
  Company Number: US-TEVA-2018-US-975272

PATIENT
  Age: 37 Year
  Sex: Male

DRUGS (2)
  1. DOBUTAMINE [Suspect]
     Active Substance: DOBUTAMINE\DOBUTAMINE HYDROCHLORIDE
     Route: 065
  2. NADOLOL. [Suspect]
     Active Substance: NADOLOL
     Route: 048

REACTIONS (4)
  - Cardiac arrest [Recovering/Resolving]
  - Bradycardia [Recovering/Resolving]
  - Toxicity to various agents [Recovering/Resolving]
  - Overdose [Recovering/Resolving]

NARRATIVE: CASE EVENT DATE: 2011
